FAERS Safety Report 17742145 (Version 1)
Quarter: 2020Q2

REPORT INFORMATION
  Report Type: Spontaneous
  Country: GB (occurrence: GB)
  Receive Date: 20200504
  Receipt Date: 20200504
  Transmission Date: 20200714
  Serious: Yes (Hospitalization)
  Sender: FDA-Public Use
  Company Number: GB-ACCORD-180787

PATIENT
  Age: 99 Year
  Sex: Female

DRUGS (13)
  1. IRON [Suspect]
     Active Substance: IRON
     Indication: BLOOD IRON DECREASED
     Route: 048
  2. PREGABALIN. [Concomitant]
     Active Substance: PREGABALIN
     Route: 048
  3. MACROGOL/MACROGOL STEARATE [Concomitant]
     Active Substance: POLYETHYLENE GLYCOLS
     Dosage: SACHET
     Route: 048
  4. OXYCODONE/OXYCODONE HYDROCHLORIDE/OXYCODONE PECTINATE/OXYCODONE TEREPHTHALATE [Concomitant]
     Active Substance: OXYCODONE
     Dosage: 1.25MG OR 2.5MG, 5MG/5ML
     Route: 048
  5. ACETYLSALICYLIC ACID [Concomitant]
     Active Substance: ASPIRIN
     Dosage: MORNING
     Route: 048
  6. IBUPROFEN. [Concomitant]
     Active Substance: IBUPROFEN
     Dosage: APPLY. THREE TIMES A DAY
     Route: 061
  7. DERMOL [Concomitant]
     Active Substance: BENZALKONIUM CHLORIDE\CHLORHEXIDINE HYDROCHLORIDE\ISOPROPYL MYRISTATE\PARAFFIN
     Dosage: APPLY
     Route: 061
  8. CALCIUM/COLECALCIFEROL [Concomitant]
     Active Substance: CALCIUM\CHOLECALCIFEROL
     Dosage: 1,000UNIT/2.5G
     Route: 048
  9. LAMOTRIGINE. [Concomitant]
     Active Substance: LAMOTRIGINE
     Route: 048
  10. OMEPRAZOLE. [Concomitant]
     Active Substance: OMEPRAZOLE
     Dosage: MORNING
     Route: 048
  11. FUROSEMIDE. [Suspect]
     Active Substance: FUROSEMIDE
     Indication: PRODUCT USED FOR UNKNOWN INDICATION
     Route: 048
  12. PARACETAMOL [Concomitant]
     Active Substance: ACETAMINOPHEN
     Dosage: 500MG/1G FOUR TIMES A DAY
     Route: 048
  13. ZEROBASE [Concomitant]
     Active Substance: MINERAL OIL\PARAFFIN
     Dosage: APPLY
     Route: 048

REACTIONS (3)
  - Constipation [Recovered/Resolved]
  - Abdominal pain [Recovered/Resolved]
  - Melaena [Not Recovered/Not Resolved]

NARRATIVE: CASE EVENT DATE: 20190702
